FAERS Safety Report 9901730 (Version 1)
Quarter: 2014Q1

REPORT INFORMATION
  Report Type: Spontaneous
  Country: BR (occurrence: BR)
  Receive Date: 20140217
  Receipt Date: 20140217
  Transmission Date: 20141002
  Serious: Yes (Hospitalization, Other)
  Sender: FDA-Public Use
  Company Number: PHHY2014BR018771

PATIENT
  Age: 66 Year
  Sex: Female

DRUGS (3)
  1. TEGRETOL [Suspect]
     Indication: AFFECTIVE DISORDER
     Dosage: 1 DF, BID (400MG)
     Route: 048
     Dates: start: 1997
  2. TEGRETOL [Suspect]
     Dosage: 2 DF, QD (200MG)
     Route: 048
  3. TEGRETOL [Suspect]
     Dosage: 2 DF, QD (200MG)
     Route: 048

REACTIONS (2)
  - Coronary artery occlusion [Recovered/Resolved]
  - Insomnia [Not Recovered/Not Resolved]
